FAERS Safety Report 17397594 (Version 2)
Quarter: 2020Q3

REPORT INFORMATION
  Report Type: Report from Study
  Country: AU (occurrence: AU)
  Receive Date: 20200210
  Receipt Date: 20200731
  Transmission Date: 20201102
  Serious: Yes (Other)
  Sender: FDA-Public Use
  Company Number: AU-JNJFOC-20190533096

PATIENT
  Age: 36 Year
  Sex: Male
  Weight: 70 kg

DRUGS (2)
  1. STELARA [Suspect]
     Active Substance: USTEKINUMAB
     Route: 058
  2. STELARA [Suspect]
     Active Substance: USTEKINUMAB
     Indication: CROHN^S DISEASE
     Route: 058

REACTIONS (15)
  - Enterocutaneous fistula [Not Recovered/Not Resolved]
  - Anastomotic fistula [Recovering/Resolving]
  - Drug dependence [Recovered/Resolved]
  - Abdominal sepsis [Unknown]
  - Intestinal stenosis [Recovered/Resolved]
  - Product use issue [Unknown]
  - Oesophageal stenosis [Recovering/Resolving]
  - Infection [Unknown]
  - Peritonitis [Unknown]
  - Intentional product misuse [Unknown]
  - Small intestinal perforation [Unknown]
  - Gastrointestinal anastomotic leak [Unknown]
  - Gallbladder necrosis [Unknown]
  - Crohn^s disease [Recovering/Resolving]
  - Off label use [Unknown]

NARRATIVE: CASE EVENT DATE: 201802
